FAERS Safety Report 11279918 (Version 1)
Quarter: 2015Q3

REPORT INFORMATION
  Report Type: Spontaneous
  Country: US (occurrence: US)
  Receive Date: 20150717
  Receipt Date: 20150717
  Transmission Date: 20151125
  Serious: Yes (Death, Hospitalization, Other)
  Sender: FDA-Public Use
  Company Number: US-INCYTE CORPORATION-2015IN002644

PATIENT
  Age: 84 Year
  Sex: Male

DRUGS (4)
  1. MEROPENEM. [Concomitant]
     Active Substance: MEROPENEM
  2. JAKAFI [Suspect]
     Active Substance: RUXOLITINIB
     Dosage: 5 MG, BID
     Route: 048
  3. JAKAFI [Suspect]
     Active Substance: RUXOLITINIB
     Indication: MYELOFIBROSIS
     Dosage: 10 MG, QD
     Route: 048
     Dates: start: 20140703
  4. JAKAFI [Suspect]
     Active Substance: RUXOLITINIB
     Dosage: 10 MG, BID
     Route: 048

REACTIONS (21)
  - Chronic obstructive pulmonary disease [Not Recovered/Not Resolved]
  - Wrong technique in product usage process [Unknown]
  - Osteomyelitis [Unknown]
  - Hypotension [Unknown]
  - Haemoglobin decreased [Unknown]
  - Cellulitis [Not Recovered/Not Resolved]
  - Disseminated intravascular coagulation [Recovering/Resolving]
  - Splenomegaly [Not Recovered/Not Resolved]
  - Thrombocytopenia [Recovering/Resolving]
  - Abscess [Not Recovered/Not Resolved]
  - White blood cell count increased [Unknown]
  - Deep vein thrombosis [Not Recovered/Not Resolved]
  - Bacteraemia [Not Recovered/Not Resolved]
  - Hypertension [Not Recovered/Not Resolved]
  - Haematoma [Not Recovered/Not Resolved]
  - Death [Fatal]
  - Dyspnoea [Unknown]
  - Fluid retention [Unknown]
  - Asthenia [Not Recovered/Not Resolved]
  - Haematocrit decreased [Unknown]
  - Catabolic state [Unknown]

NARRATIVE: CASE EVENT DATE: 2015
